FAERS Safety Report 14079792 (Version 1)
Quarter: 2017Q4

REPORT INFORMATION
  Report Type: Spontaneous
  Country: US (occurrence: US)
  Receive Date: 20171012
  Receipt Date: 20171012
  Transmission Date: 20180321
  Serious: Yes (Other)
  Sender: FDA-Public Use
  Company Number: US-PFIZER INC-2017439168

PATIENT
  Age: 70 Year
  Sex: Female
  Weight: 63.96 kg

DRUGS (1)
  1. DIAZEPAM. [Suspect]
     Active Substance: DIAZEPAM

REACTIONS (1)
  - Drug dependence [Unknown]
